FAERS Safety Report 25167671 (Version 2)
Quarter: 2025Q2

REPORT INFORMATION
  Report Type: Spontaneous
  Country: CA (occurrence: CA)
  Receive Date: 20250407
  Receipt Date: 20250421
  Transmission Date: 20250717
  Serious: Yes (Other)
  Sender: PFIZER
  Company Number: CA-PFIZER INC-202500072087

PATIENT
  Age: 55 Year
  Sex: Female

DRUGS (2)
  1. CIBINQO [Suspect]
     Active Substance: ABROCITINIB
     Indication: Dermatitis atopic
     Dosage: 200 MG, 1X/DAY
     Route: 048
     Dates: start: 20241003
  2. BILASTINE [Concomitant]
     Active Substance: BILASTINE

REACTIONS (2)
  - Ankle fracture [Unknown]
  - Accident [Unknown]

NARRATIVE: CASE EVENT DATE: 20250301
